FAERS Safety Report 4892872-1 (Version None)
Quarter: 2005Q4

REPORT INFORMATION
  Report Type: 
  Country: None (occurrence: None)
  Receive Date: 20051223
  Receipt Date: 20050112
  Transmission Date: 20060501
  Serious: Yes (Hospitalization)
  Sender: FDA-Public Use
  Company Number: PHEH2005US00809

PATIENT
  Age: 53 Year
  Sex: Female

DRUGS (4)
  1. CLOZARIL [Suspect]
     Indication: SCHIZOPHRENIA
     Dosage: 500 MG, QD, ORAL
     Route: 048
  2. PROZAC [Concomitant]
  3. AMANTADINE HCL [Concomitant]
  4. HALDOL [Concomitant]

REACTIONS (2)
  - LEUKOCYTOSIS [None]
  - PNEUMONIA [None]
